FAERS Safety Report 6179892-4 (Version None)
Quarter: 2009Q2

REPORT INFORMATION
  Report Type: 
  Country: None (occurrence: None)
  Receive Date: 20090505
  Receipt Date: 20090325
  Transmission Date: 20091009
  Serious: No
  Sender: FDA-Public Use
  Company Number: US-TYCO HEALTHCARE/MALLINCKRODT-T200900736

PATIENT
  Sex: Male

DRUGS (2)
  1. OXYCODONE HCL EXTENDED-RELEASE [Suspect]
  2. METHYLIN [Concomitant]

REACTIONS (4)
  - DIZZINESS [None]
  - FATIGUE [None]
  - HYPERSOMNIA [None]
  - WRONG DRUG ADMINISTERED [None]
